FAERS Safety Report 4656623-8 (Version None)
Quarter: 2005Q2

REPORT INFORMATION
  Report Type: 
  Country: None (occurrence: None)
  Receive Date: 20050509
  Receipt Date: 20050426
  Transmission Date: 20051028
  Serious: Yes (Other)
  Sender: FDA-Public Use
  Company Number: JP-NOVOPROD-243809

PATIENT
  Age: 34 Year
  Sex: Female

DRUGS (3)
  1. PENFILL R CHU [Suspect]
     Indication: DIABETES MELLITUS INSULIN-DEPENDENT
  2. NOVOLIN R [Suspect]
     Indication: DIABETES MELLITUS INSULIN-DEPENDENT
  3. NOVOLIN N CHU [Suspect]
     Indication: DIABETES MELLITUS INSULIN-DEPENDENT

REACTIONS (1)
  - DIABETIC RETINOPATHY [None]
